FAERS Safety Report 9248431 (Version 1)
Quarter: 2013Q2

REPORT INFORMATION
  Report Type: Spontaneous
  Country: US (occurrence: US)
  Receive Date: 20130423
  Receipt Date: 20130423
  Transmission Date: 20140414
  Serious: Yes (Other)
  Sender: FDA-Public Use
  Company Number: US-PFIZER INC-2013125103

PATIENT
  Sex: Female

DRUGS (16)
  1. METHOTREXATE SODIUM [Suspect]
     Dosage: UNK
  2. METOPROLOL TARTRATE [Suspect]
     Dosage: UNK
  3. LISINOPRIL [Suspect]
     Dosage: UNK
  4. POTASSIUM CHLORIDE [Suspect]
     Dosage: UNK
  5. PREDNISONE [Suspect]
     Dosage: UNK
  6. AMITRIPTYLINE [Suspect]
     Dosage: UNK
  7. CELEXA [Suspect]
     Dosage: UNK
  8. FLEXERIL [Suspect]
     Dosage: UNK
  9. INSULIN [Suspect]
     Dosage: UNK
  10. LANTUS [Suspect]
     Dosage: UNK
  11. LASIX [Suspect]
     Dosage: UNK
  12. NOVOLOG [Suspect]
     Indication: DIABETES MELLITUS
     Dosage: UNK
  13. PERCOCET [Suspect]
     Dosage: UNK
  14. PLAQUENIL [Suspect]
     Dosage: UNK
  15. VITAMIN D [Suspect]
     Dosage: UNK
  16. ZESTRIL [Suspect]
     Dosage: 5 MG, UNK

REACTIONS (4)
  - Cerebrovascular accident [Unknown]
  - Weight increased [Unknown]
  - Arthritis [Unknown]
  - Blood disorder [Unknown]
